FAERS Safety Report 7678790-4 (Version None)
Quarter: 2011Q3

REPORT INFORMATION
  Report Type: 
  Country: None (occurrence: None)
  Receive Date: 20110811
  Receipt Date: 20110802
  Transmission Date: 20111222
  Serious: Yes (Other)
  Sender: FDA-Public Use
  Company Number: CN-ASTRAZENECA-2011SE45831

PATIENT
  Age: 43 Year
  Sex: Female
  Weight: 55 kg

DRUGS (5)
  1. MIDAZOLAM HCL [Concomitant]
     Indication: ANAESTHESIA
  2. FENTANYL [Concomitant]
     Indication: ANAESTHESIA
  3. TRACRIUM [Concomitant]
     Indication: ANAESTHESIA
  4. PROPOFOL [Suspect]
     Indication: LAPAROSCOPY
     Route: 042
  5. PROPOFOL [Suspect]
     Indication: ANAESTHESIA
     Route: 042

REACTIONS (4)
  - DISCOMFORT [None]
  - AGITATION [None]
  - TREMOR [None]
  - RESTLESSNESS [None]
